FAERS Safety Report 7812140-5 (Version None)
Quarter: 2011Q4

REPORT INFORMATION
  Report Type: 
  Country: None (occurrence: None)
  Receive Date: 20111013
  Receipt Date: 20111005
  Transmission Date: 20120403
  Serious: Yes (Hospitalization, Other)
  Sender: FDA-Public Use
  Company Number: AU-ELI_LILLY_AND_COMPANY-AU201110000401

PATIENT
  Sex: Male

DRUGS (4)
  1. CIALIS [Suspect]
     Dosage: UNK
     Dates: end: 20110702
  2. CIALIS [Suspect]
     Dosage: UNK
     Dates: end: 20100701
  3. CIALIS [Suspect]
     Dosage: 1 DF, UNK
  4. CIALIS [Suspect]
     Dosage: UNK
     Dates: end: 20110703

REACTIONS (4)
  - ERECTION INCREASED [None]
  - PROSTATIC DISORDER [None]
  - DRUG INEFFECTIVE [None]
  - TESTICULAR PAIN [None]
